FAERS Safety Report 5393556-6 (Version None)
Quarter: 2007Q3

REPORT INFORMATION
  Report Type: 
  Country: None (occurrence: None)
  Receive Date: 20070723
  Receipt Date: 20060818
  Transmission Date: 20080115
  Serious: Yes (Hospitalization)
  Sender: FDA-Public Use
  Company Number: A0616761A

PATIENT
  Age: 61 Year
  Sex: Male

DRUGS (8)
  1. AVANDIA [Suspect]
     Dosage: 4MG PER DAY
     Route: 048
     Dates: start: 20060527
  2. DIOVAN [Concomitant]
  3. NORVASC [Concomitant]
  4. METFORMIN HCL [Concomitant]
  5. ASPIRIN [Concomitant]
  6. NOVOLOG [Concomitant]
  7. GLIPIZIDE [Concomitant]
  8. LOVASTATIN [Concomitant]

REACTIONS (1)
  - JOINT SWELLING [None]
